FAERS Safety Report 16382168 (Version 1)
Quarter: 2019Q2

REPORT INFORMATION
  Report Type: Spontaneous
  Country: US (occurrence: US)
  Receive Date: 20190603
  Receipt Date: 20190603
  Transmission Date: 20190711
  Serious: No
  Sender: FDA-Public Use
  Company Number: US-BAYER-2019-107313

PATIENT
  Sex: Female

DRUGS (7)
  1. CALCITRIOL. [Concomitant]
     Active Substance: CALCITRIOL
  2. LISINOPRIL. [Concomitant]
     Active Substance: LISINOPRIL
  3. ROZEREM [Concomitant]
     Active Substance: RAMELTEON
  4. BETASERON [Suspect]
     Active Substance: INTERFERON BETA-1B
     Indication: DIZZINESS
     Dosage: 0.25 MG
     Dates: start: 20180125
  5. BETASERON [Suspect]
     Active Substance: INTERFERON BETA-1B
     Indication: DIZZINESS
  6. ALPRAZOLAM. [Concomitant]
     Active Substance: ALPRAZOLAM
  7. SERTRALINE HCL [Concomitant]
     Active Substance: SERTRALINE HYDROCHLORIDE

REACTIONS (2)
  - Malaise [None]
  - Product dose omission [Not Recovered/Not Resolved]
